FAERS Safety Report 8809130 (Version 1)
Quarter: 2012Q4

REPORT INFORMATION
  Report Type: Spontaneous
  Country: UY (occurrence: None)
  Receive Date: 20120920
  Receipt Date: 20120920
  Transmission Date: 20130627
  Serious: Yes (Other)
  Sender: FDA-Public Use
  Company Number: DSA_59730_2012

PATIENT
  Age: 59 Year
  Sex: Female

DRUGS (4)
  1. WELLBUTRIN XL [Suspect]
     Indication: ANXIETY
     Dates: start: 201206, end: 201209
  2. WELLBUTRIN XL [Suspect]
     Indication: WEIGHT INCREASED
     Dates: start: 201206, end: 201209
  3. WELLBUTRIN XL [Suspect]
     Indication: ANXIETY
     Dosage: every two days
     Dates: start: 201209
  4. WELLBUTRIN XL [Suspect]
     Indication: WEIGHT INCREASED
     Dosage: every two days
     Dates: start: 201209

REACTIONS (3)
  - Aggression [None]
  - Crying [None]
  - Irritability [None]
